FAERS Safety Report 7400744-3 (Version None)
Quarter: 2011Q2

REPORT INFORMATION
  Report Type: 
  Country: None (occurrence: None)
  Receive Date: 20110407
  Receipt Date: 20110330
  Transmission Date: 20111010
  Serious: Yes (Other)
  Sender: FDA-Public Use
  Company Number: A0920709A

PATIENT
  Age: 12 Year
  Sex: Male

DRUGS (8)
  1. XOPENEX [Concomitant]
  2. ALBUTEROL [Concomitant]
  3. ALBUTEROL INHALER [Concomitant]
  4. IPRATROPIUM BROMIDE [Concomitant]
  5. RHINOCORT [Concomitant]
  6. ALLEGRA [Concomitant]
  7. COUGH MED WITH CODEINE [Concomitant]
  8. ADVAIR HFA [Suspect]
     Indication: ASTHMA
     Dosage: 1PUFF TWICE PER DAY
     Route: 055
     Dates: start: 20100301

REACTIONS (2)
  - DRUG INEFFECTIVE [None]
  - ASTHMA [None]
